FAERS Safety Report 8796393 (Version 1)
Quarter: 2012Q4

REPORT INFORMATION
  Report Type: Report from Study
  Country: JP (occurrence: JP)
  Receive Date: 20120919
  Receipt Date: 20120919
  Transmission Date: 20130627
  Serious: Yes (Life-Threatening, Hospitalization)
  Sender: FDA-Public Use
  Company Number: JP-PFIZER INC-2012135442

PATIENT
  Age: 69 Year
  Sex: Male
  Weight: 49.5 kg

DRUGS (5)
  1. BOSUTINIB [Suspect]
     Indication: CHRONIC MYELOID LEUKAEMIA
     Dosage: 400 mg, 1x/day
     Route: 048
     Dates: start: 20100422, end: 20120604
  2. TAKEPRON OD [Concomitant]
     Indication: DYSPEPSIA
     Dosage: 15 mg, 1x/day
     Route: 048
     Dates: start: 20100428
  3. SELBEX [Concomitant]
     Indication: PROPHYLAXIS AGAINST GASTROINTESTINAL ULCER
     Dosage: 50 mg, 3x/day
     Route: 048
     Dates: start: 20100325
  4. FERROMIA [Concomitant]
     Indication: IRON DEFICIENCY ANAEMIA
     Dosage: 50 mg, 1x/day
     Route: 048
     Dates: start: 20110616
  5. GASLON [Concomitant]
     Indication: SMALL INTESTINE ULCER
     Dosage: 4 mg, 2x/day
     Route: 048
     Dates: start: 20110601

REACTIONS (1)
  - Posterior reversible encephalopathy syndrome [Recovering/Resolving]
